FAERS Safety Report 9859661 (Version 3)
Quarter: 2014Q1

REPORT INFORMATION
  Report Type: Spontaneous
  Country: US (occurrence: US)
  Receive Date: 20140131
  Receipt Date: 20140312
  Transmission Date: 20141002
  Serious: Yes (Hospitalization)
  Sender: FDA-Public Use
  Company Number: US-GLAXOSMITHKLINE-A1058063A

PATIENT
  Age: 81 Year
  Sex: Female

DRUGS (5)
  1. ADVAIR [Suspect]
     Indication: BRONCHITIS CHRONIC
     Dosage: 1PUFF TWICE PER DAY
     Route: 055
  2. ACID REFLUX MED. [Concomitant]
  3. NEPHRON [Concomitant]
  4. CHOLESTEROL REDUCING AGENT NAME NOT KNOWN [Concomitant]
  5. VENTOLIN [Concomitant]

REACTIONS (4)
  - Hypoxia [Recovering/Resolving]
  - Bronchitis [Recovering/Resolving]
  - Cough [Not Recovered/Not Resolved]
  - Product quality issue [Unknown]
